FAERS Safety Report 25239015 (Version 1)
Quarter: 2025Q2

REPORT INFORMATION
  Report Type: Spontaneous
  Country: CA (occurrence: CA)
  Receive Date: 20250425
  Receipt Date: 20250425
  Transmission Date: 20250716
  Serious: Yes (Hospitalization, Other)
  Sender: Norvium Bioscience
  Company Number: CA-Norvium Bioscience LLC-080061

PATIENT
  Age: 18 Year
  Sex: Male

DRUGS (1)
  1. AZITHROMYCIN [Suspect]
     Active Substance: AZITHROMYCIN
     Indication: Chlamydial infection
     Route: 048

REACTIONS (2)
  - Mania [Recovering/Resolving]
  - Psychotic symptom [Recovering/Resolving]
